FAERS Safety Report 15109935 (Version 2)
Quarter: 2018Q3

REPORT INFORMATION
  Report Type: Spontaneous
  Country: DE (occurrence: DE)
  Receive Date: 20180705
  Receipt Date: 20180808
  Transmission Date: 20181010
  Serious: Yes (Other)
  Sender: FDA-Public Use
  Company Number: DE-LPDUSPRD-20181163

PATIENT
  Age: 30 Year
  Sex: Female

DRUGS (2)
  1. TACROLIMUS. [Suspect]
     Active Substance: TACROLIMUS
     Dosage: UNKNOWN
     Route: 065
  2. FERINJECT [Suspect]
     Active Substance: FERRIC CARBOXYMALTOSE
     Dosage: UNKNOWN
     Route: 041

REACTIONS (5)
  - Product use in unapproved indication [Unknown]
  - Drug interaction [Unknown]
  - Tubulointerstitial nephritis [Unknown]
  - Transplant rejection [Unknown]
  - Drug effect decreased [Unknown]
